FAERS Safety Report 6725774-6 (Version None)
Quarter: 2010Q2

REPORT INFORMATION
  Report Type: 
  Country: None (occurrence: None)
  Receive Date: 20100514
  Receipt Date: 20100507
  Transmission Date: 20101027
  Serious: Yes (Other)
  Sender: FDA-Public Use
  Company Number: US-AMGEN-QUU404782

PATIENT
  Sex: Male
  Weight: 127.1 kg

DRUGS (2)
  1. NPLATE [Suspect]
     Indication: IDIOPATHIC THROMBOCYTOPENIC PURPURA
     Route: 058
     Dates: start: 20090325, end: 20090701
  2. PROMACTA [Concomitant]

REACTIONS (1)
  - DRUG INEFFECTIVE [None]
